FAERS Safety Report 7042495-3 (Version None)
Quarter: 2010Q4

REPORT INFORMATION
  Report Type: 
  Country: None (occurrence: None)
  Receive Date: 20101013
  Receipt Date: 20100222
  Transmission Date: 20110411
  Serious: No
  Sender: FDA-Public Use
  Company Number: US-ASTRAZENECA-2010SE07787

PATIENT
  Age: 20 Year
  Sex: Female

DRUGS (3)
  1. SYMBICORT [Suspect]
     Dosage: 80/4.5 MCG, 2 PUFFS BID
     Route: 055
  2. THEOPHYLLINE [Concomitant]
  3. ALBUTEROL [Concomitant]

REACTIONS (5)
  - HEADACHE [None]
  - NERVOUSNESS [None]
  - THROAT IRRITATION [None]
  - VISION BLURRED [None]
  - VISUAL ACUITY REDUCED [None]
